FAERS Safety Report 6234256-X (Version None)
Quarter: 2009Q2

REPORT INFORMATION
  Report Type: 
  Country: None (occurrence: None)
  Receive Date: 20090618
  Receipt Date: 20090615
  Transmission Date: 20091009
  Serious: Yes (Other)
  Sender: FDA-Public Use
  Company Number: US-ASTRAZENECA-2009UW15177

PATIENT
  Age: 75 Year
  Sex: Male

DRUGS (3)
  1. TOPROL-XL [Suspect]
     Route: 048
  2. PLAVIX [Concomitant]
  3. ALTACE [Concomitant]

REACTIONS (4)
  - COGNITIVE DISORDER [None]
  - CONCUSSION [None]
  - MEMORY IMPAIRMENT [None]
  - RIB FRACTURE [None]
